FAERS Safety Report 5156377-5 (Version None)
Quarter: 2006Q4

REPORT INFORMATION
  Report Type: 
  Country: None (occurrence: None)
  Receive Date: 20061122
  Receipt Date: 20060907
  Transmission Date: 20070319
  Serious: Yes (Life-Threatening, Hospitalization, Other)
  Sender: FDA-Public Use
  Company Number: HQWYE467808SEP06

PATIENT
  Sex: Female
  Weight: 40 kg

DRUGS (44)
  1. ENBREL [Suspect]
     Indication: JUVENILE ARTHRITIS
     Route: 058
     Dates: start: 20051111, end: 20051111
  2. ENBREL [Suspect]
     Route: 058
     Dates: start: 20051118, end: 20051122
  3. ENBREL [Suspect]
     Route: 058
     Dates: start: 20051129, end: 20060123
  4. ENBREL [Suspect]
     Route: 058
     Dates: start: 20060126, end: 20060824
  5. PREDNISOLONE [Suspect]
     Route: 048
     Dates: start: 20051031, end: 20051108
  6. PREDNISOLONE [Suspect]
     Route: 048
     Dates: start: 20051108
  7. PREDNISOLONE [Suspect]
     Route: 048
     Dates: start: 20051110, end: 20051116
  8. PREDNISOLONE [Suspect]
     Dosage: UNKNOWN
     Route: 048
     Dates: start: 20051117, end: 20060119
  9. PREDNISOLONE [Suspect]
     Dosage: UNKNOWN
     Route: 048
     Dates: start: 20060125
  10. PREDNISOLONE [Suspect]
     Dosage: UNKNOWN
     Route: 048
     Dates: start: 20060202
  11. PREDNISOLONE [Suspect]
     Dosage: UNKNOWN
     Route: 048
     Dates: start: 20060217
  12. PREDNISOLONE [Suspect]
     Dosage: UNKNOWN
     Route: 048
     Dates: start: 20060303
  13. PREDNISOLONE [Suspect]
     Dosage: UNKNOWN
     Route: 048
     Dates: start: 20060317
  14. PREDNISOLONE [Suspect]
     Dosage: UNKNOWN
     Route: 048
     Dates: start: 20060414
  15. PREDNISOLONE [Suspect]
     Dosage: UNKNOWN
     Route: 048
     Dates: start: 20060512, end: 20060608
  16. PREDNISOLONE [Suspect]
     Route: 048
     Dates: start: 20060609, end: 20060810
  17. PREDNISOLONE [Suspect]
     Route: 048
     Dates: start: 20060810, end: 20060829
  18. PREDNISOLONE [Suspect]
     Route: 048
     Dates: start: 20060829
  19. METHOTREXATE [Suspect]
     Indication: JUVENILE ARTHRITIS
     Route: 048
     Dates: start: 20051027, end: 20051103
  20. METHOTREXATE [Suspect]
     Route: 048
     Dates: start: 20051103, end: 20061108
  21. METHOTREXATE [Suspect]
     Dates: start: 20051108, end: 20051215
  22. METHOTREXATE [Suspect]
     Dosage: UNKNOWN
     Dates: start: 20051215, end: 20060825
  23. PREDONINE [Suspect]
     Dosage: UNKNOWN
     Route: 048
     Dates: start: 20051031, end: 20051109
  24. BACTRIM [Concomitant]
     Route: 048
     Dates: start: 20051031, end: 20060608
  25. ONE-ALPHA [Concomitant]
     Indication: OSTEOPOROSIS
     Route: 048
     Dates: start: 20051031, end: 20051130
  26. FAMOTIDINE [Concomitant]
     Indication: PROPHYLAXIS
     Route: 048
     Dates: start: 20051031
  27. MAGNESIUM OXIDE [Concomitant]
     Route: 045
     Dates: start: 20051031
  28. POSTERISAN [Concomitant]
     Indication: HAEMORRHOIDS
     Dosage: UNKNOWN
     Route: 061
     Dates: start: 20051112, end: 20051130
  29. CATLEP [Concomitant]
     Indication: JUVENILE ARTHRITIS
     Dosage: UNKNOWN
     Route: 061
     Dates: start: 20051031, end: 20060113
  30. FOLIAMIN [Concomitant]
     Route: 048
     Dates: start: 20051031, end: 20060825
  31. LAXOBERON [Concomitant]
     Indication: CONSTIPATION
     Dosage: 7 DF/UNKNOWN FREQUENCY
     Route: 048
     Dates: start: 20050101, end: 20051130
  32. PURSENNID [Concomitant]
     Indication: CONSTIPATION
     Route: 048
     Dates: start: 20051118, end: 20051124
  33. ACTONEL [Concomitant]
     Indication: OSTEOPOROSIS
     Route: 048
     Dates: start: 20051128
  34. EURAX [Concomitant]
     Dosage: UNKNOWN
     Route: 061
     Dates: start: 20051123, end: 20051130
  35. FUNGIZONE [Concomitant]
     Route: 048
     Dates: start: 20051031, end: 20060216
  36. ADOFEED [Concomitant]
     Indication: JUVENILE ARTHRITIS
     Route: 048
     Dates: start: 20051201
  37. ADOFEED [Concomitant]
     Route: 048
     Dates: start: 20051223, end: 20051227
  38. MEVALOTIN [Concomitant]
     Indication: HYPERLIPIDAEMIA
     Route: 048
     Dates: start: 20060414, end: 20060608
  39. INSULIN HUMAN [Concomitant]
     Indication: DIABETES MELLITUS
     Dosage: UNKNOWN
     Route: 058
     Dates: start: 20051106
  40. ISOPHANE INSULIN [Concomitant]
     Indication: DIABETES MELLITUS
     Dosage: UNKNOWN
     Route: 058
     Dates: start: 20051106
  41. NOVORAPID [Concomitant]
     Indication: DIABETES MELLITUS
     Dosage: UNKNOWN
     Route: 058
     Dates: start: 20051106
  42. GENTACIN [Concomitant]
     Dosage: UNKNOWN
     Route: 061
     Dates: start: 20051104, end: 20051130
  43. MUCOSOLVAN [Concomitant]
     Indication: NASOPHARYNGITIS
     Route: 048
     Dates: start: 20051229, end: 20060110
  44. SALICYLAMIDE [Concomitant]
     Indication: NASOPHARYNGITIS
     Route: 048
     Dates: start: 20051223, end: 20051227

REACTIONS (2)
  - CYTOMEGALOVIRUS INFECTION [None]
  - PNEUMOCYSTIS JIROVECI PNEUMONIA [None]
